FAERS Safety Report 17199919 (Version 1)
Quarter: 2019Q4

REPORT INFORMATION
  Report Type: Spontaneous
  Country: US (occurrence: US)
  Receive Date: 20191226
  Receipt Date: 20191226
  Transmission Date: 20200122
  Serious: No
  Sender: FDA-Public Use
  Company Number: US-CIPLA LTD.-2019US00464

PATIENT

DRUGS (2)
  1. LAMOTRIGINE. [Suspect]
     Active Substance: LAMOTRIGINE
     Indication: EMOTIONAL POVERTY
     Dosage: 350 MILLIGRAM, QD, (2 TABLETS OF 150 MG AND HALF OF TABLET OF 100 MG EVERY MORNING)
     Route: 048
     Dates: start: 2017
  2. PRISTIQ EXTENDED-RELEASE [Concomitant]
     Active Substance: DESVENLAFAXINE SUCCINATE
     Indication: DEPRESSED MOOD
     Dosage: 100 MILLIGRAM, QD (ONE PILL EVERY DAY)
     Route: 065

REACTIONS (2)
  - Product physical issue [Unknown]
  - Feeling abnormal [Not Recovered/Not Resolved]

NARRATIVE: CASE EVENT DATE: 20190114
